FAERS Safety Report 5030853-8 (Version None)
Quarter: 2006Q2

REPORT INFORMATION
  Report Type: 
  Country: None (occurrence: None)
  Receive Date: 20060504
  Receipt Date: 20060212
  Transmission Date: 20061013
  Serious: No
  Sender: FDA-Public Use
  Company Number: 200610925BWH

PATIENT
  Age: 64 Year
  Sex: Male

DRUGS (1)
  1. LEVITRA [Suspect]
     Indication: LIBIDO DECREASED
     Dosage: ORAL
     Route: 048

REACTIONS (1)
  - LIBIDO DECREASED [None]
